FAERS Safety Report 12376201 (Version 1)
Quarter: 2016Q2

REPORT INFORMATION
  Report Type: Report from Study
  Country: US (occurrence: US)
  Receive Date: 20160517
  Receipt Date: 20160517
  Transmission Date: 20160815
  Serious: Yes (Hospitalization, Other)
  Sender: FDA-Public Use
  Company Number: US-MALLINCKRODT-T201601657

PATIENT
  Sex: Female
  Weight: 63 kg

DRUGS (2)
  1. REPOSITORY CORTICOTROPIN INJECTION [Suspect]
     Active Substance: CORTICOTROPIN
     Indication: RHEUMATOID ARTHRITIS
     Dosage: ONCE
     Route: 065
     Dates: start: 2016, end: 2016
  2. REPOSITORY CORTICOTROPIN INJECTION [Suspect]
     Active Substance: CORTICOTROPIN
     Indication: MYOSITIS

REACTIONS (4)
  - Liver disorder [Recovered/Resolved]
  - Renal disorder [Recovered/Resolved]
  - Pulmonary oedema [Recovered/Resolved]
  - Thrombosis [Recovered/Resolved]
